FAERS Safety Report 4384648-9 (Version None)
Quarter: 2004Q2

REPORT INFORMATION
  Report Type: 
  Country: None (occurrence: None)
  Receive Date: 20040625
  Receipt Date: 20040420
  Transmission Date: 20050107
  Serious: No
  Sender: FDA-Public Use
  Company Number: US-BRISTOL-MYERS SQUIBB COMPANY-12565628

PATIENT
  Age: 61 Year
  Sex: Male
  Weight: 100 kg

DRUGS (3)
  1. SINEMET [Suspect]
     Indication: PARKINSON'S DISEASE
     Route: 048
     Dates: start: 20000601
  2. SINEMET CR [Suspect]
     Indication: PARKINSON'S DISEASE
     Dates: start: 20040301
  3. SELEGILINE HCL [Concomitant]

REACTIONS (1)
  - RESTLESS LEGS SYNDROME [None]
